FAERS Safety Report 7945920-6 (Version None)
Quarter: 2011Q4

REPORT INFORMATION
  Report Type: 
  Country: None (occurrence: None)
  Receive Date: 20111129
  Receipt Date: 20111124
  Transmission Date: 20120403
  Serious: Yes (Hospitalization, Disabling)
  Sender: FDA-Public Use
  Company Number: PHHO2011KR018488

PATIENT
  Sex: Female
  Weight: 43 kg

DRUGS (2)
  1. AFINITOR [Suspect]
     Indication: METASTATIC RENAL CELL CARCINOMA
     Dosage: 10 MG, QD
     Route: 048
     Dates: start: 20101013, end: 20111122
  2. OXYCODONE HCL [Concomitant]
     Indication: PAIN

REACTIONS (1)
  - PYELONEPHRITIS [None]
